FAERS Safety Report 4646099-9 (Version None)
Quarter: 2005Q2

REPORT INFORMATION
  Report Type: 
  Country: None (occurrence: None)
  Receive Date: 20050427
  Receipt Date: 20050111
  Transmission Date: 20051028
  Serious: Yes (Other)
  Sender: FDA-Public Use
  Company Number: US-GLAXOSMITHKLINE-A0540287A

PATIENT
  Age: 57 Year
  Sex: Female

DRUGS (2)
  1. ZOFRAN [Suspect]
     Indication: PROPHYLAXIS OF NAUSEA AND VOMITING
     Dosage: 4MG SINGLE DOSE
     Route: 042
     Dates: start: 20040315, end: 20040315
  2. DIPRIVAN [Suspect]

REACTIONS (1)
  - URTICARIA [None]
